FAERS Safety Report 12728120 (Version 2)
Quarter: 2016Q4

REPORT INFORMATION
  Report Type: Report from Study
  Country: US (occurrence: US)
  Receive Date: 20160909
  Receipt Date: 20161208
  Transmission Date: 20170207
  Serious: Yes (Hospitalization)
  Sender: FDA-Public Use
  Company Number: US-BIOVITRUM-2016US0694

PATIENT
  Age: 27 Year
  Sex: Female

DRUGS (1)
  1. KINERET [Suspect]
     Active Substance: ANAKINRA
     Indication: STILL^S DISEASE ADULT ONSET
     Route: 058
     Dates: start: 20160730

REACTIONS (2)
  - Loss of consciousness [Unknown]
  - Pyrexia [Unknown]

NARRATIVE: CASE EVENT DATE: 201608
